FAERS Safety Report 10049883 (Version 1)
Quarter: 2014Q1

REPORT INFORMATION
  Report Type: Spontaneous
  Country: US (occurrence: None)
  Receive Date: 20140331
  Receipt Date: 20140331
  Transmission Date: 20141002
  Serious: No
  Sender: FDA-Public Use
  Company Number: None

PATIENT
  Age: 57 Year
  Sex: Male
  Weight: 90.72 kg

DRUGS (2)
  1. DEXTROAMPHETAMINE SALTS [Suspect]
     Indication: ATTENTION DEFICIT/HYPERACTIVITY DISORDER
     Dates: start: 20140201, end: 20140329
  2. DEXTROAMPHETAMINE SALTS [Suspect]
     Indication: ATTENTION DEFICIT/HYPERACTIVITY DISORDER
     Dates: start: 20140201, end: 20140329

REACTIONS (6)
  - Product substitution issue [None]
  - Nausea [None]
  - Vomiting [None]
  - Sedation [None]
  - Impaired work ability [None]
  - Educational problem [None]
